FAERS Safety Report 7523668-X (Version None)
Quarter: 2011Q2

REPORT INFORMATION
  Report Type: 
  Country: None (occurrence: None)
  Receive Date: 20110603
  Receipt Date: 20110526
  Transmission Date: 20111010
  Serious: Yes (Hospitalization)
  Sender: FDA-Public Use
  Company Number: US-ROCHE-780257

PATIENT
  Age: 61 Year
  Sex: Female

DRUGS (12)
  1. PRILOSEC [Concomitant]
     Dosage: DAILY
  2. ATARAX [Concomitant]
     Indication: RASH
     Route: 048
     Dates: start: 20110317
  3. VICODIN [Concomitant]
     Dosage: 5/500 TABLET.
     Dates: start: 20110223
  4. BEVACIZUMAB [Suspect]
     Indication: NON-SMALL CELL LUNG CANCER
     Route: 042
     Dates: start: 20110427
  5. ZOFRAN [Concomitant]
     Route: 048
     Dates: start: 20110203
  6. PHENERGAN HCL [Concomitant]
     Dosage: 1/2 OR 1
     Route: 048
  7. LISINOPRIL [Concomitant]
     Dosage: 1/2 OF 25 MG TAB DAILY
     Dates: start: 20110208
  8. FENTANYL-100 [Concomitant]
     Dosage: 3 DAYS
     Dates: start: 20101228
  9. BENADRYL [Concomitant]
     Dates: start: 20101222
  10. NEULASTA [Concomitant]
     Route: 058
     Dates: start: 20110204
  11. FENTANYL-100 [Concomitant]
     Dates: start: 20101101, end: 20101208
  12. LISINOPRIL [Concomitant]
     Dosage: DAILY.
     Dates: start: 20100101, end: 20110208

REACTIONS (5)
  - MENTAL STATUS CHANGES [None]
  - HYPOKALAEMIA [None]
  - VOMITING [None]
  - HYPONATRAEMIA [None]
  - NAUSEA [None]
